FAERS Safety Report 7951849 (Version 3)
Quarter: 2014Q1

REPORT INFORMATION
  Report Type: Spontaneous
  Country: BR (occurrence: BR)
  Receive Date: 20110519
  Receipt Date: 20140314
  Transmission Date: 20141002
  Serious: Yes (Disabling, Other)
  Sender: FDA-Public Use
  Company Number: BR-ASTRAZENECA-2009UW08277

PATIENT
  Age: 3389 Week
  Sex: Male
  Weight: 76 kg

DRUGS (5)
  1. SELOZOK [Suspect]
     Indication: HYPERTENSION
     Route: 048
     Dates: start: 200812
  2. SELOZOK [Suspect]
     Indication: HYPERTENSION
     Route: 048
     Dates: start: 20140307
  3. DIOVAN [Concomitant]
     Indication: HYPERTENSION
     Dosage: MORE THAN 4 YEARS
     Route: 048
  4. ZOLOFT [Concomitant]
     Indication: DEPRESSION
     Dosage: MORE THAN 4 YEARS
     Route: 048
  5. REMERON [Concomitant]
     Indication: DEPRESSION
     Dosage: MORE THAN 4 YEARS
     Route: 048

REACTIONS (7)
  - Fall [Unknown]
  - Fibula fracture [Recovered/Resolved]
  - Tibia fracture [Recovered/Resolved]
  - Faeces hard [Recovered/Resolved]
  - Viral infection [Unknown]
  - Erectile dysfunction [Recovered/Resolved]
  - Vomiting [Recovered/Resolved]
